FAERS Safety Report 9070131 (Version 1)
Quarter: 2013Q1

REPORT INFORMATION
  Report Type: Report from Study
  Country: US (occurrence: US)
  Receive Date: 20130129
  Receipt Date: 20130129
  Transmission Date: 20140127
  Serious: No
  Sender: FDA-Public Use
  Company Number: US-ABBOTT-12P-163-0926815-00

PATIENT
  Age: 67 None
  Sex: Female
  Weight: 56.3 kg

DRUGS (5)
  1. HUMIRA 40 MG/0.8 ML PEN [Suspect]
     Indication: CROHN^S DISEASE
     Dosage: STARTED WITH LOADING DOSE
     Dates: start: 20120405
  2. LEVOTHYROXINE [Concomitant]
     Indication: HYPOTHYROIDISM
  3. AMBIEN [Concomitant]
     Indication: PRODUCT USED FOR UNKNOWN INDICATION
  4. METOPROLOL [Concomitant]
     Indication: PRODUCT USED FOR UNKNOWN INDICATION
  5. PENTASA [Concomitant]
     Indication: PRODUCT USED FOR UNKNOWN INDICATION

REACTIONS (4)
  - Muscle spasms [Recovered/Resolved]
  - Back pain [Unknown]
  - Spinal compression fracture [Unknown]
  - Muscle spasms [Recovering/Resolving]
